FAERS Safety Report 8274258-5 (Version None)
Quarter: 2012Q2

REPORT INFORMATION
  Report Type: 
  Country: None (occurrence: None)
  Receive Date: 20120411
  Receipt Date: 20120411
  Transmission Date: 20120825
  Serious: Yes (Other)
  Sender: FDA-Public Use
  Company Number: None

PATIENT
  Age: 31 Year
  Sex: Female
  Weight: 72.574 kg

DRUGS (1)
  1. REYATAZ [Suspect]

REACTIONS (3)
  - OCULAR ICTERUS [None]
  - YELLOW SKIN [None]
  - HYPERBILIRUBINAEMIA [None]
